FAERS Safety Report 20236126 (Version 1)
Quarter: 2021Q4

REPORT INFORMATION
  Report Type: Spontaneous
  Country: DK (occurrence: DK)
  Receive Date: 20211228
  Receipt Date: 20211228
  Transmission Date: 20220303
  Serious: Yes (Hospitalization)
  Sender: FDA-Public Use
  Company Number: None

PATIENT

DRUGS (10)
  1. ZOLADEX [Suspect]
     Active Substance: GOSERELIN ACETATE
     Indication: Endometriosis
     Dosage: 1 DF
     Route: 065
     Dates: start: 20200803
  2. PANTOPRAZOLE SODIUM [Concomitant]
     Active Substance: PANTOPRAZOLE SODIUM
     Indication: Gastrooesophageal reflux disease
     Dosage: UNK
     Route: 065
     Dates: start: 20181219
  3. CALCIUM CARBONATE\CHOLECALCIFEROL [Concomitant]
     Active Substance: CALCIUM CARBONATE\CHOLECALCIFEROL
     Indication: Osteoporosis prophylaxis
     Dosage: UNK
     Route: 065
     Dates: start: 2020
  4. VIVELLE-DOT [Concomitant]
     Active Substance: ESTRADIOL
     Indication: Hormone therapy
     Dosage: UNK
     Route: 065
     Dates: start: 20201101
  5. GABAPENTIN [Concomitant]
     Active Substance: GABAPENTIN
     Indication: Pain
     Dosage: UNK
     Route: 065
     Dates: start: 2018
  6. FENOVERINE [Concomitant]
     Active Substance: FENOVERINE
     Indication: Pain
     Dosage: UNK
     Route: 065
     Dates: start: 2017
  7. FUROSEMIDE SODIUM [Concomitant]
     Active Substance: FUROSEMIDE SODIUM
     Indication: Diuretic therapy
     Dosage: UNK
     Route: 065
     Dates: start: 2019
  8. SPIRONOLACTONE [Concomitant]
     Active Substance: SPIRONOLACTONE
     Indication: Oedema
     Dosage: UNK
     Route: 065
     Dates: start: 2018
  9. CLONIDINE [Concomitant]
     Active Substance: CLONIDINE
     Indication: Hyperhidrosis
     Dosage: UNK
     Route: 065
     Dates: start: 2020
  10. KALIUMKLORID [Concomitant]
     Indication: Blood potassium decreased
     Dosage: UNK
     Route: 065
     Dates: start: 2019

REACTIONS (4)
  - Swollen tongue [Recovered/Resolved]
  - Urticaria [Not Recovered/Not Resolved]
  - Rash pruritic [Not Recovered/Not Resolved]
  - Rash maculo-papular [Not Recovered/Not Resolved]

NARRATIVE: CASE EVENT DATE: 20210924
